FAERS Safety Report 5375468-7 (Version None)
Quarter: 2007Q2

REPORT INFORMATION
  Report Type: 
  Country: None (occurrence: None)
  Receive Date: 20070629
  Receipt Date: 20070620
  Transmission Date: 20071010
  Serious: Yes (Life-Threatening, Hospitalization)
  Sender: FDA-Public Use
  Company Number: GB-SHR-GB-2007-021783

PATIENT
  Age: 73 Year
  Sex: Male

DRUGS (1)
  1. ULTRAVIST 300 [Suspect]
     Dosage: UNK, 1 DOSE
     Route: 042
     Dates: start: 20070606, end: 20070606

REACTIONS (3)
  - BRONCHOSPASM [None]
  - RESPIRATORY ARREST [None]
  - VOMITING [None]
